FAERS Safety Report 7512976-4 (Version None)
Quarter: 2011Q2

REPORT INFORMATION
  Report Type: 
  Country: None (occurrence: None)
  Receive Date: 20110531
  Receipt Date: 20101210
  Transmission Date: 20111010
  Serious: No
  Sender: FDA-Public Use
  Company Number: US-NOVEN-ALL1-2010-06443

PATIENT
  Sex: Male
  Weight: 24 kg

DRUGS (5)
  1. COD LIVER OIL [Concomitant]
     Dosage: UNK
  2. INOSITOL [Concomitant]
     Dosage: UNK
  3. DAYTRANA [Suspect]
     Indication: ATTENTION DEFICIT/HYPERACTIVITY DISORDER
     Dosage: 10 MG, 1X/DAY: QD
     Route: 062
     Dates: start: 20100401
  4. DHA [Concomitant]
     Dosage: UNK
  5. EVENING PRIMROSE OIL               /01031101/ [Concomitant]
     Dosage: UNK

REACTIONS (3)
  - PRODUCT ADHESION ISSUE [None]
  - INCORRECT DRUG ADMINISTRATION DURATION [None]
  - THERAPEUTIC RESPONSE UNEXPECTED [None]
